FAERS Safety Report 8216916-4 (Version None)
Quarter: 2012Q1

REPORT INFORMATION
  Report Type: 
  Country: None (occurrence: None)
  Receive Date: 20120318
  Receipt Date: 20120309
  Transmission Date: 20120608
  Serious: Yes (Other)
  Sender: FDA-Public Use
  Company Number: FR-ROCHE-1046070

PATIENT
  Sex: Female
  Weight: 62.062 kg

DRUGS (2)
  1. XOLAIR [Suspect]
     Indication: ASTHMA
     Route: 058
     Dates: start: 20061101
  2. XOLAIR [Suspect]
     Route: 058
     Dates: start: 20120201, end: 20120201

REACTIONS (6)
  - NAUSEA [None]
  - BLOOD PRESSURE DECREASED [None]
  - MALAISE [None]
  - HEADACHE [None]
  - HOT FLUSH [None]
  - VOMITING [None]
